FAERS Safety Report 12772263 (Version 2)
Quarter: 2016Q4

REPORT INFORMATION
  Report Type: Spontaneous
  Country: US (occurrence: US)
  Receive Date: 20160922
  Receipt Date: 20161004
  Transmission Date: 20170207
  Serious: Yes (Other)
  Sender: FDA-Public Use
  Company Number: US-LPDUSPRD-20160823

PATIENT
  Sex: Male

DRUGS (3)
  1. CYCLOPHOSPHAMIDE. [Suspect]
     Active Substance: CYCLOPHOSPHAMIDE
     Dosage: 10 MG/KG X 4
     Route: 065
  2. FLUDARABINE [Suspect]
     Active Substance: FLUDARABINE PHOSPHATE
     Dosage: 35 MG/M2 X 4
     Route: 065
  3. BUSULFAN INJECTION (0517-0920-01) [Suspect]
     Active Substance: BUSULFAN
     Dosage: 0.8-1.0 MG/KG/DOSE Q12HR X 4
     Route: 065

REACTIONS (4)
  - Haemochromatosis [Unknown]
  - Hypothyroidism [Unknown]
  - Hypogonadism [Unknown]
  - Androgen deficiency [Unknown]
